FAERS Safety Report 6936865-9 (Version None)
Quarter: 2010Q3

REPORT INFORMATION
  Report Type: 
  Country: None (occurrence: None)
  Receive Date: 20100823
  Receipt Date: 20100819
  Transmission Date: 20110219
  Serious: Yes (Other)
  Sender: FDA-Public Use
  Company Number: US-BRISTOL-MYERS SQUIBB COMPANY-15211162

PATIENT
  Age: 35 Year
  Sex: Female

DRUGS (5)
  1. ORENCIA [Suspect]
     Dosage: ALSO ON 13JUL2010
     Route: 042
     Dates: start: 20100630
  2. PREDNISONE [Concomitant]
  3. ZOFRAN [Concomitant]
  4. METHOTREXATE [Concomitant]
  5. TRAMADOL [Concomitant]

REACTIONS (1)
  - MIGRAINE [None]
